FAERS Safety Report 24379855 (Version 2)
Quarter: 2024Q4

REPORT INFORMATION
  Report Type: Spontaneous
  Country: US (occurrence: US)
  Receive Date: 20240930
  Receipt Date: 20241024
  Transmission Date: 20250114
  Serious: Yes (Hospitalization, Other)
  Sender: PFIZER
  Company Number: US-BRISTOL-MYERS SQUIBB COMPANY-2024-152282

PATIENT
  Age: 45 Year
  Sex: Female
  Weight: 51.26 kg

DRUGS (48)
  1. ELIQUIS [Suspect]
     Active Substance: APIXABAN
     Indication: Pulmonary embolism
     Dosage: UNK
     Dates: start: 20240224, end: 20240319
  2. ELIQUIS [Suspect]
     Active Substance: APIXABAN
     Dosage: UNK
     Dates: start: 20240321
  3. ENCORAFENIB [Suspect]
     Active Substance: ENCORAFENIB
     Indication: Colon cancer metastatic
     Dosage: 2 MONTHS 7 DAYS, CYCLE 1
     Route: 048
     Dates: start: 20240110, end: 20240317
  4. ENCORAFENIB [Suspect]
     Active Substance: ENCORAFENIB
     Dosage: 2 MONTHS 7 DAYS, CYCLE 1
     Route: 048
     Dates: start: 20240110, end: 20240317
  5. ENCORAFENIB [Suspect]
     Active Substance: ENCORAFENIB
     Dosage: 2 MONTHS 7 DAYS, CYCLE 2
     Route: 048
     Dates: start: 20240110, end: 20240317
  6. ENCORAFENIB [Suspect]
     Active Substance: ENCORAFENIB
     Dosage: 2 MONTHS 7 DAYS, CYCLE 2
     Route: 048
     Dates: start: 20240110, end: 20240317
  7. ENCORAFENIB [Suspect]
     Active Substance: ENCORAFENIB
     Dosage: 2 MONTHS 7 DAYS, CYCLE 3
     Route: 048
     Dates: start: 20240110, end: 20240317
  8. ENCORAFENIB [Suspect]
     Active Substance: ENCORAFENIB
     Dosage: 2 MONTHS 7 DAYS, CYCLE 3
     Route: 048
     Dates: start: 20240110, end: 20240317
  9. ASN-007 [Suspect]
     Active Substance: ASN-007
     Indication: Adenocarcinoma of colon
     Dosage: BID-QW, 2 MONTHS 3 DAYS, CYCLE 1
     Route: 048
     Dates: start: 20240110, end: 20240313
  10. ASN-007 [Suspect]
     Active Substance: ASN-007
     Dosage: BID-QW, 2 MONTHS 3 DAYS, CYCLE 1
     Route: 048
     Dates: start: 20240110, end: 20240313
  11. ASN-007 [Suspect]
     Active Substance: ASN-007
     Dosage: BID-QW, 2 MONTHS 3 DAYS, CYCLE 2
     Route: 048
  12. ASN-007 [Suspect]
     Active Substance: ASN-007
     Dosage: BID-QW, 2 MONTHS 3 DAYS, CYCLE 3
     Route: 048
     Dates: start: 20240306
  13. ASN-007 [Suspect]
     Active Substance: ASN-007
     Dosage: BID-QW, 2 MONTHS 3 DAYS, CYCLE 3
     Route: 048
     Dates: start: 20240306
  14. CETUXIMAB [Suspect]
     Active Substance: CETUXIMAB
     Indication: Adenocarcinoma of colon
     Dosage: Q2W, 1 MONTH 26 DAYS, C1D1
     Route: 042
     Dates: start: 20240110, end: 20240307
  15. CETUXIMAB [Suspect]
     Active Substance: CETUXIMAB
     Dosage: Q2W, 1 MONTH 26 DAYS, C1D1
     Route: 042
     Dates: start: 20240110, end: 20240307
  16. CETUXIMAB [Suspect]
     Active Substance: CETUXIMAB
     Dosage: Q2W, 1 MONTH 26 DAYS, C1D1
     Route: 042
     Dates: start: 20240110, end: 20240307
  17. CETUXIMAB [Suspect]
     Active Substance: CETUXIMAB
     Dosage: Q2W, 1 MONTH 26 DAYS, C1D1
     Route: 042
     Dates: start: 20240110, end: 20240307
  18. CETUXIMAB [Suspect]
     Active Substance: CETUXIMAB
     Dosage: Q2W, 1 MONTH 26 DAYS, C1D15
     Route: 042
     Dates: start: 20240110, end: 20240307
  19. CETUXIMAB [Suspect]
     Active Substance: CETUXIMAB
     Dosage: Q2W, 1 MONTH 26 DAYS, C1D15
     Route: 042
     Dates: start: 20240110, end: 20240307
  20. CETUXIMAB [Suspect]
     Active Substance: CETUXIMAB
     Dosage: Q2W, 1 MONTH 26 DAYS, C1D15
     Route: 042
     Dates: start: 20240110, end: 20240307
  21. CETUXIMAB [Suspect]
     Active Substance: CETUXIMAB
     Dosage: Q2W, 1 MONTH 26 DAYS, C1D15
     Route: 042
     Dates: start: 20240110, end: 20240307
  22. CETUXIMAB [Suspect]
     Active Substance: CETUXIMAB
     Dosage: Q2W, 1 MONTH 26 DAYS, C2D1
     Route: 042
  23. CETUXIMAB [Suspect]
     Active Substance: CETUXIMAB
     Dosage: Q2W, 1 MONTH 26 DAYS, C2D1
     Route: 042
  24. CETUXIMAB [Suspect]
     Active Substance: CETUXIMAB
     Dosage: Q2W, 1 MONTH 26 DAYS, C2D1
     Route: 042
  25. CETUXIMAB [Suspect]
     Active Substance: CETUXIMAB
     Dosage: Q2W, 1 MONTH 26 DAYS, C2D1
     Route: 042
  26. CETUXIMAB [Suspect]
     Active Substance: CETUXIMAB
     Dosage: Q2W, 1 MONTH 26 DAYS, C2D15
     Route: 042
  27. CETUXIMAB [Suspect]
     Active Substance: CETUXIMAB
     Dosage: Q2W, 1 MONTH 26 DAYS, C2D15
     Route: 042
  28. CETUXIMAB [Suspect]
     Active Substance: CETUXIMAB
     Dosage: Q2W, 1 MONTH 26 DAYS, C2D15
     Route: 042
  29. CETUXIMAB [Suspect]
     Active Substance: CETUXIMAB
     Dosage: Q2W, 1 MONTH 26 DAYS, C2D15
     Route: 042
  30. CETUXIMAB [Suspect]
     Active Substance: CETUXIMAB
     Dosage: Q2W, 1 MONTH 26 DAYS, C3D1
     Route: 042
     Dates: start: 20240306
  31. CETUXIMAB [Suspect]
     Active Substance: CETUXIMAB
     Dosage: Q2W, 1 MONTH 26 DAYS, C3D1
     Route: 042
     Dates: start: 20240306
  32. CETUXIMAB [Suspect]
     Active Substance: CETUXIMAB
     Dosage: Q2W, 1 MONTH 26 DAYS, C3D1
     Route: 042
     Dates: start: 20240306
  33. CETUXIMAB [Suspect]
     Active Substance: CETUXIMAB
     Dosage: Q2W, 1 MONTH 26 DAYS, C3D1
     Route: 042
     Dates: start: 20240306
  34. COMPAZINE [Concomitant]
     Active Substance: PROCHLORPERAZINE MALEATE
     Indication: Nausea
     Dates: start: 20230911
  35. COMPAZINE [Concomitant]
     Active Substance: PROCHLORPERAZINE MALEATE
     Indication: Vomiting
  36. ROXICODONE [Concomitant]
     Active Substance: OXYCODONE HYDROCHLORIDE
     Indication: Abdominal pain
     Dates: start: 20240111
  37. MAGNESIUM CITRATE [Concomitant]
     Active Substance: MAGNESIUM CITRATE
     Dosage: UNK
  38. MELATONIN [Concomitant]
     Active Substance: MELATONIN
     Dosage: UNK
  39. NARCAN [Concomitant]
     Active Substance: NALOXONE HYDROCHLORIDE
     Dosage: UNK
  40. PERI-COLACE [DOCUSATE SODIUM;SENNOSIDE A+B] [Concomitant]
     Dosage: UNK
  41. SENOKOT [Concomitant]
     Active Substance: SENNOSIDES
     Dosage: UNK
  42. ZOFRAN [Concomitant]
     Active Substance: ONDANSETRON HYDROCHLORIDE
     Indication: Nausea
     Dosage: UNK
     Dates: start: 20230911
  43. ZOFRAN [Concomitant]
     Active Substance: ONDANSETRON HYDROCHLORIDE
     Indication: Vomiting
  44. ATIVAN [Concomitant]
     Active Substance: LORAZEPAM
     Indication: Anxiety
     Dosage: UNK
     Dates: start: 20230821
  45. ATIVAN [Concomitant]
     Active Substance: LORAZEPAM
     Indication: Abdominal pain
  46. COZAAR [Concomitant]
     Active Substance: LOSARTAN POTASSIUM
     Indication: Hypertension
     Dosage: UNK
     Dates: start: 20230821, end: 2024
  47. BENTYL [Concomitant]
     Active Substance: DICYCLOMINE HYDROCHLORIDE
     Indication: Cancer pain
     Dosage: UNK
     Dates: start: 20240103
  48. MS CONTIN [Concomitant]
     Active Substance: MORPHINE SULFATE
     Dosage: UNK
     Dates: start: 20240111

REACTIONS (3)
  - Rectal haemorrhage [Recovered/Resolved]
  - Cardiac failure congestive [Recovered/Resolved]
  - Neoplasm progression [Unknown]

NARRATIVE: CASE EVENT DATE: 20240304
